FAERS Safety Report 24356904 (Version 1)
Quarter: 2024Q3

REPORT INFORMATION
  Report Type: Spontaneous
  Country: SE (occurrence: SE)
  Receive Date: 20240924
  Receipt Date: 20240924
  Transmission Date: 20241016
  Serious: Yes (Hospitalization, Other)
  Sender: NOVARTIS
  Company Number: None

PATIENT
  Age: 26 Year
  Sex: Female
  Weight: 66 kg

DRUGS (1)
  1. COSENTYX [Suspect]
     Active Substance: SECUKINUMAB
     Indication: Axial spondyloarthritis
     Dosage: 1 INJEKTION VAR 30:E DAG DOS: SENARE DOS
     Route: 058
     Dates: start: 20221114, end: 20240313

REACTIONS (4)
  - Mobility decreased [Not Recovered/Not Resolved]
  - Skin induration [Not Recovered/Not Resolved]
  - Morphoea [Not Recovered/Not Resolved]
  - Pain in extremity [Not Recovered/Not Resolved]

NARRATIVE: CASE EVENT DATE: 20230901
